FAERS Safety Report 7057217-X (Version None)
Quarter: 2010Q4

REPORT INFORMATION
  Report Type: 
  Country: None (occurrence: None)
  Receive Date: 20101022
  Receipt Date: 20101013
  Transmission Date: 20110411
  Serious: Yes (Other)
  Sender: FDA-Public Use
  Company Number: US-US-EMD SERONO, INC.-7017352

PATIENT
  Sex: Female
  Weight: 99 kg

DRUGS (24)
  1. REBIF [Suspect]
     Indication: MULTIPLE SCLEROSIS
     Route: 058
     Dates: start: 20050301, end: 20090801
  2. REBIF [Suspect]
     Route: 058
     Dates: start: 20090801, end: 20100728
  3. TRAZODONE HCL [Concomitant]
     Route: 048
     Dates: start: 20010101
  4. DIAZEPAM [Concomitant]
     Route: 048
     Dates: start: 20030101
  5. PROMETHAZINE [Concomitant]
     Indication: NAUSEA
     Dates: start: 20070101
  6. CYMBALTA [Concomitant]
     Route: 048
     Dates: start: 20090101
  7. MECLIZINE [Concomitant]
     Indication: DIZZINESS
     Route: 048
     Dates: start: 20090101
  8. MAXALT [Concomitant]
     Indication: MIGRAINE
     Route: 048
     Dates: start: 20090101
  9. PRILOSEC [Concomitant]
     Route: 048
     Dates: start: 20090101
  10. ZONALON [Concomitant]
     Dates: start: 20100101
  11. ZOFRAN [Concomitant]
     Indication: NAUSEA
     Dates: start: 20100101
  12. NEURONTIN [Concomitant]
     Route: 048
     Dates: start: 20080101
  13. SYNTHROID [Concomitant]
     Route: 048
     Dates: start: 20010101
  14. CRESTOR [Concomitant]
     Route: 048
     Dates: start: 20040101
  15. TIZANIDINE HCL [Concomitant]
     Route: 048
     Dates: start: 20070101
  16. COENZYME Q10 [Concomitant]
     Dates: start: 20070101
  17. VITAMIN B-12 [Concomitant]
     Dates: start: 20070101
  18. OXYBUTYNIN EXTENDED RELEASE [Concomitant]
     Dates: start: 20090101
  19. VITAMIN D [Concomitant]
     Dates: start: 20090101
  20. AMPHETAMINE AND DEXTROAMPHETAMINE SALTS [Concomitant]
     Route: 048
     Dates: start: 20100101
  21. OXYCONTIN [Concomitant]
     Route: 048
     Dates: start: 20100101
  22. COLACE [Concomitant]
     Route: 048
     Dates: start: 20090101
  23. LORTAB [Concomitant]
     Route: 048
     Dates: start: 20090101
  24. BENEFIBER [Concomitant]
     Dates: start: 20100101

REACTIONS (2)
  - HAEMOCHROMATOSIS [None]
  - HEPATIC STEATOSIS [None]
